FAERS Safety Report 15432521 (Version 2)
Quarter: 2018Q4

REPORT INFORMATION
  Report Type: Spontaneous
  Country: AU (occurrence: AU)
  Receive Date: 20180927
  Receipt Date: 20181109
  Transmission Date: 20190204
  Serious: Yes (Life-Threatening, Hospitalization)
  Sender: FDA-Public Use
  Company Number: AU-B.I. PHARMACEUTICALS,INC./RIDGEFIELD-2018-BI-047062

PATIENT
  Age: 47 Year
  Sex: Female
  Weight: 93 kg

DRUGS (2)
  1. NOVORAPID [Concomitant]
     Active Substance: INSULIN ASPART
     Indication: PRODUCT USED FOR UNKNOWN INDICATION
     Dosage: VARIABLE VIA PUMP
     Route: 065
     Dates: start: 1989
  2. JARDIANCE [Suspect]
     Active Substance: EMPAGLIFLOZIN
     Indication: TYPE 1 DIABETES MELLITUS
     Route: 065
     Dates: end: 20180918

REACTIONS (4)
  - Somnolence [Unknown]
  - Euglycaemic diabetic ketoacidosis [Recovered/Resolved]
  - Candida infection [Unknown]
  - Off label use [Unknown]

NARRATIVE: CASE EVENT DATE: 20180917
